FAERS Safety Report 9686558 (Version 1)
Quarter: 2013Q4

REPORT INFORMATION
  Report Type: Spontaneous
  Country: DE (occurrence: None)
  Receive Date: 20131108
  Receipt Date: 20131108
  Transmission Date: 20140711
  Serious: Yes (Death)
  Sender: FDA-Public Use
  Company Number: 2013313401

PATIENT
  Age: 82 Year
  Sex: Male
  Weight: 89 kg

DRUGS (1)
  1. DALTEPARIN SODIUM [Suspect]
     Route: 058
     Dates: start: 20130905, end: 20130908

REACTIONS (2)
  - Circulatory collapse [None]
  - Pulmonary haemorrhage [None]
